FAERS Safety Report 22100378 (Version 1)
Quarter: 2023Q1

REPORT INFORMATION
  Report Type: Report from Study
  Country: US (occurrence: US)
  Receive Date: 20230315
  Receipt Date: 20230315
  Transmission Date: 20230418
  Serious: Yes (Hospitalization)
  Sender: FDA-Public Use
  Company Number: US-ABBVIE-4341733

PATIENT
  Age: 48 Year
  Sex: Male

DRUGS (1)
  1. SKYRIZI [Suspect]
     Active Substance: RISANKIZUMAB-RZAA
     Indication: Product used for unknown indication
     Route: 058
     Dates: start: 20220225

REACTIONS (6)
  - Abdominal pain upper [Unknown]
  - Viral infection [Unknown]
  - Asthenia [Unknown]
  - Pyrexia [Unknown]
  - General physical health deterioration [Unknown]
  - Chills [Unknown]

NARRATIVE: CASE EVENT DATE: 20230201
